FAERS Safety Report 6380728-7 (Version None)
Quarter: 2009Q3

REPORT INFORMATION
  Report Type: 
  Country: None (occurrence: None)
  Receive Date: 20090929
  Receipt Date: 20090917
  Transmission Date: 20100115
  Serious: Yes (Other)
  Sender: FDA-Public Use
  Company Number: US-PFIZER INC-2008046471

PATIENT
  Sex: Female
  Weight: 78.471 kg

DRUGS (5)
  1. CHANTIX [Suspect]
     Indication: SMOKING CESSATION THERAPY
     Dosage: 0.5 MG, 1X/DAY
     Route: 048
     Dates: start: 20080620
  2. KLONOPIN [Concomitant]
     Indication: BIPOLAR I DISORDER
     Dosage: UNK
     Route: 048
  3. ZYPREXA [Concomitant]
     Dosage: UNK
     Route: 048
  4. EFFEXOR [Concomitant]
     Indication: BIPOLAR I DISORDER
     Dosage: UNK
     Route: 048
  5. QUINAPRIL [Concomitant]
     Dosage: UNK

REACTIONS (2)
  - BIPOLAR I DISORDER [None]
  - PARANOIA [None]
